FAERS Safety Report 4374184-8 (Version None)
Quarter: 2004Q2

REPORT INFORMATION
  Report Type: 
  Country: None (occurrence: None)
  Receive Date: 20040608
  Receipt Date: 20040608
  Transmission Date: 20050107
  Serious: No
  Sender: FDA-Public Use
  Company Number: None

PATIENT
  Age: 5 Year
  Sex: Female
  Weight: 18.2 kg

DRUGS (1)
  1. NORTRIPTYLINE HCL [Suspect]
     Dosage: 15 MG PO /DAY
     Route: 048
     Dates: start: 20040223, end: 20040426

REACTIONS (1)
  - MEDICATION ERROR [None]
